FAERS Safety Report 6874042-0 (Version None)
Quarter: 2010Q3

REPORT INFORMATION
  Report Type: 
  Country: None (occurrence: None)
  Receive Date: 20100722
  Receipt Date: 20100708
  Transmission Date: 20110219
  Serious: Yes (Other)
  Sender: FDA-Public Use
  Company Number: 1000014727

PATIENT
  Age: 43 Year
  Sex: Female
  Weight: 79 kg

DRUGS (5)
  1. ESCITALOPRAM [Suspect]
     Indication: DEPRESSION
     Dosage: 10 MG (10 MG, 1 IN 1 D), ORAL
     Route: 048
     Dates: start: 20100319, end: 20100413
  2. ESCITALOPRAM [Suspect]
     Indication: DEPRESSION
     Dosage: 5 MG (5 MG, 1 IN 1 D), ORAL
     Route: 048
     Dates: start: 20100414, end: 20100609
  3. ALPRAZOLAM [Concomitant]
  4. ZOLPIDEM [Concomitant]
  5. ATHYMIL [Concomitant]

REACTIONS (3)
  - BREAST HAEMATOMA [None]
  - CHOLELITHIASIS [None]
  - PANCREATITIS [None]
